FAERS Safety Report 4295493-7 (Version None)
Quarter: 2004Q1

REPORT INFORMATION
  Report Type: 
  Country: None (occurrence: None)
  Receive Date: 20040216
  Receipt Date: 20030711
  Transmission Date: 20041129
  Serious: No
  Sender: FDA-Public Use
  Company Number: US-GLAXOSMITHKLINE-A0416384A

PATIENT
  Age: 49 Year
  Sex: Female

DRUGS (2)
  1. PAXIL [Suspect]
     Indication: DEPRESSION
     Route: 048
     Dates: start: 20030707
  2. XANAX [Concomitant]

REACTIONS (8)
  - ASTHMA [None]
  - CHOKING SENSATION [None]
  - DYSPHAGIA [None]
  - MUSCLE TIGHTNESS [None]
  - MYALGIA [None]
  - NECK PAIN [None]
  - PAIN IN JAW [None]
  - PARAESTHESIA ORAL [None]
